FAERS Safety Report 5607573-1 (Version None)
Quarter: 2008Q1

REPORT INFORMATION
  Report Type: 
  Country: None (occurrence: None)
  Receive Date: 20080130
  Receipt Date: 20080117
  Transmission Date: 20080703
  Serious: Yes (Other)
  Sender: FDA-Public Use
  Company Number: PHBS2008NL01082

PATIENT
  Sex: Female
  Weight: 62 kg

DRUGS (1)
  1. RITALIN [Suspect]
     Indication: ATTENTION DEFICIT/HYPERACTIVITY DISORDER
     Dosage: 10 MG, 5QD
     Dates: start: 19990622

REACTIONS (2)
  - NEURALGIA [None]
  - RAYNAUD'S PHENOMENON [None]
